FAERS Safety Report 9343330 (Version 1)
Quarter: 2013Q2

REPORT INFORMATION
  Report Type: Report from Study
  Country: CL (occurrence: CL)
  Receive Date: 20130612
  Receipt Date: 20130612
  Transmission Date: 20140414
  Serious: Yes (Other)
  Sender: FDA-Public Use
  Company Number: CL-ROCHE-1235204

PATIENT
  Age: 47 Year
  Sex: Female
  Weight: 67 kg

DRUGS (2)
  1. XELODA [Suspect]
     Indication: BREAST CANCER
     Route: 048
     Dates: start: 20121025
  2. ZOMETA [Concomitant]
     Route: 042
     Dates: start: 201304

REACTIONS (1)
  - Breast mass [Not Recovered/Not Resolved]
